FAERS Safety Report 24322982 (Version 1)
Quarter: 2024Q3

REPORT INFORMATION
  Report Type: Spontaneous
  Country: US (occurrence: None)
  Receive Date: 20240914
  Receipt Date: 20240914
  Transmission Date: 20241016
  Serious: Yes (Hospitalization)
  Sender: Public
  Company Number: None

PATIENT
  Sex: Male
  Weight: 76.8 kg

DRUGS (1)
  1. XELODA [Suspect]
     Active Substance: CAPECITABINE

REACTIONS (5)
  - Abdominal pain [None]
  - Diarrhoea [None]
  - Nausea [None]
  - Vomiting [None]
  - Clostridium difficile infection [None]

NARRATIVE: CASE EVENT DATE: 20240909
